FAERS Safety Report 20947658 (Version 3)
Quarter: 2023Q2

REPORT INFORMATION
  Report Type: Spontaneous
  Country: US (occurrence: US)
  Receive Date: 20220611
  Receipt Date: 20230626
  Transmission Date: 20230722
  Serious: Yes (Other)
  Sender: FDA-Public Use
  Company Number: US-JNJFOC-20220611389

PATIENT
  Age: 6 Decade
  Sex: Male

DRUGS (6)
  1. ELMIRON [Suspect]
     Active Substance: PENTOSAN POLYSULFATE SODIUM
     Indication: Cystitis interstitial
     Route: 048
     Dates: start: 20080702, end: 2010
  2. AMLODIPINE [Concomitant]
     Active Substance: AMLODIPINE BESYLATE
     Indication: Blood pressure abnormal
     Dates: start: 20101123
  3. AMLODIPINE [Concomitant]
     Active Substance: AMLODIPINE BESYLATE
     Dates: start: 201101, end: 201605
  4. PRAVASTATIN [Concomitant]
     Active Substance: PRAVASTATIN
     Indication: Blood cholesterol
     Dates: start: 20110630
  5. PRAVASTATIN [Concomitant]
     Active Substance: PRAVASTATIN
     Dates: start: 201203, end: 201701
  6. SIMVASTATIN [Concomitant]
     Active Substance: SIMVASTATIN
     Indication: Blood cholesterol
     Dates: start: 20110125, end: 20110629

REACTIONS (2)
  - Dry age-related macular degeneration [Not Recovered/Not Resolved]
  - Pigmentary maculopathy [Unknown]

NARRATIVE: CASE EVENT DATE: 20110101
